FAERS Safety Report 5360568-8 (Version None)
Quarter: 2007Q2

REPORT INFORMATION
  Report Type: 
  Country: None (occurrence: None)
  Receive Date: 20070530
  Receipt Date: 20070130
  Transmission Date: 20071010
  Serious: No
  Sender: FDA-Public Use
  Company Number: 2007PV029277

PATIENT
  Age: 67 Year
  Sex: Female
  Weight: 78.0187 kg

DRUGS (3)
  1. BYETTA [Suspect]
     Indication: DIABETES MELLITUS NON-INSULIN-DEPENDENT
     Dosage: 10 MCG;QAM;SC ; 5 MCG;QAM;SC ; 5 MCG;BID;SC
     Route: 058
     Dates: start: 20061001, end: 20070118
  2. BYETTA [Suspect]
     Indication: DIABETES MELLITUS NON-INSULIN-DEPENDENT
     Dosage: 10 MCG;QAM;SC ; 5 MCG;QAM;SC ; 5 MCG;BID;SC
     Route: 058
     Dates: start: 20070119
  3. BYETTA [Suspect]
     Indication: DIABETES MELLITUS NON-INSULIN-DEPENDENT
     Dosage: 10 MCG;QAM;SC ; 5 MCG;QAM;SC ; 5 MCG;BID;SC
     Route: 058
     Dates: start: 20070119

REACTIONS (1)
  - BUNDLE BRANCH BLOCK LEFT [None]
